FAERS Safety Report 19441565 (Version 1)
Quarter: 2021Q2

REPORT INFORMATION
  Report Type: Report from Study
  Country: DE (occurrence: DE)
  Receive Date: 20210621
  Receipt Date: 20210621
  Transmission Date: 20210717
  Serious: Yes (Hospitalization)
  Sender: FDA-Public Use
  Company Number: DE-GPPHARMP-2021000076

PATIENT
  Sex: Male
  Weight: 78 kg

DRUGS (1)
  1. LUTRATE DEPOT [Suspect]
     Active Substance: LEUPROLIDE ACETATE
     Indication: PROSTATE CANCER
     Route: 030
     Dates: start: 20170904, end: 20180515

REACTIONS (1)
  - Peripheral vascular disorder [Unknown]

NARRATIVE: CASE EVENT DATE: 20171030
